FAERS Safety Report 5944537-2 (Version None)
Quarter: 2008Q4

REPORT INFORMATION
  Report Type: 
  Country: None (occurrence: None)
  Receive Date: 20081104
  Receipt Date: 20081027
  Transmission Date: 20090506
  Serious: Yes (Hospitalization)
  Sender: FDA-Public Use
  Company Number: GXKR2008NL10247

PATIENT
  Age: 55 Year
  Sex: Female
  Weight: 76 kg

DRUGS (5)
  1. CEFUROXIME [Suspect]
     Dosage: 1500 MG, INTRAVENOUS
     Route: 042
     Dates: start: 20081013
  2. CLINDAMYCINE (NGX) (CLINDAMYCIN) UNKNOWN, 150MG/ML [Suspect]
     Dosage: 4 ML, INTRAVENOUS
     Route: 042
     Dates: start: 20081013
  3. DIPRIVAN (PROPOFOL) SOLUTION FOR INJECTION, 20MG/ML [Suspect]
     Dosage: INTRAVENOUS
     Route: 042
     Dates: start: 20081013
  4. ULTIVA (REMIFENTANIL HYDROCHLORIDE) POWDER FOR [Suspect]
     Dosage: INTRAVENOUS
     Route: 042
     Dates: start: 20081013
  5. LIDOCAINE [Suspect]
     Dosage: INTRAVENOUS
     Route: 042
     Dates: start: 20081013

REACTIONS (2)
  - INJECTION SITE PAIN [None]
  - VENOUS THROMBOSIS [None]
